FAERS Safety Report 9576212 (Version 1)
Quarter: 2013Q4

REPORT INFORMATION
  Report Type: Spontaneous
  Country: US (occurrence: US)
  Receive Date: 20131001
  Receipt Date: 20131001
  Transmission Date: 20140711
  Serious: No
  Sender: FDA-Public Use
  Company Number: US-AMGEN-USASP2013001238

PATIENT
  Age: 14 Year
  Sex: Female
  Weight: 52.15 kg

DRUGS (7)
  1. ENBREL [Suspect]
     Indication: PSORIASIS
     Dosage: 50 MG, 2 TIMES/WK
     Route: 058
  2. ENBREL [Suspect]
     Indication: PSORIATIC ARTHROPATHY
  3. ZOLOFT [Concomitant]
     Dosage: 25 MG, UNK
  4. IBUPROFEN [Concomitant]
     Dosage: 200 MG, UNK
  5. VITAMIN D                          /00107901/ [Concomitant]
     Dosage: 1000 UNIT, UNK
  6. ALEVE [Concomitant]
     Dosage: 220 MG, UNK
  7. CYCLOSPORINE [Concomitant]
     Dosage: 100 MG, UNK

REACTIONS (2)
  - Arthralgia [Unknown]
  - Psoriasis [Unknown]
